FAERS Safety Report 19771798 (Version 1)
Quarter: 2021Q3

REPORT INFORMATION
  Report Type: Spontaneous
  Country: CA (occurrence: CA)
  Receive Date: 20210901
  Receipt Date: 20210901
  Transmission Date: 20211014
  Serious: Yes (Other)
  Sender: FDA-Public Use
  Company Number: CA-SAMSUNG BIOEPIS-SB-2020-34535

PATIENT
  Age: 36 Year
  Sex: Male
  Weight: 80 kg

DRUGS (3)
  1. INFLIXIMAB [Suspect]
     Active Substance: INFLIXIMAB
     Indication: CROHN^S DISEASE
     Route: 042
  2. HYDROCORTISONE. [Concomitant]
     Active Substance: HYDROCORTISONE
     Indication: PREMEDICATION
     Route: 065
  3. REMICADE [Concomitant]
     Active Substance: INFLIXIMAB
     Indication: CROHN^S DISEASE
     Dosage: POWDER FOR SOLUTION INTRAVENOUS
     Route: 065

REACTIONS (14)
  - Weight fluctuation [Unknown]
  - Heart rate decreased [Unknown]
  - Nasopharyngitis [Unknown]
  - Off label use [Unknown]
  - Fluid retention [Unknown]
  - Weight increased [Unknown]
  - Condition aggravated [Unknown]
  - Intentional product use issue [Unknown]
  - Blood pressure increased [Unknown]
  - Night sweats [Unknown]
  - Therapeutic response shortened [Unknown]
  - Blood pressure fluctuation [Unknown]
  - Cough [Unknown]
  - Fatigue [Unknown]
